FAERS Safety Report 20204952 (Version 1)
Quarter: 2021Q4

REPORT INFORMATION
  Report Type: Spontaneous
  Country: None (occurrence: JP)
  Receive Date: 20211220
  Receipt Date: 20211220
  Transmission Date: 20220303
  Serious: Yes (Hospitalization, Other)
  Sender: FDA-Public Use
  Company Number: JP-Oxford Pharmaceuticals, LLC-2123191

PATIENT
  Age: 92 Year
  Sex: Female

DRUGS (8)
  1. SIMVASTATIN [Suspect]
     Active Substance: SIMVASTATIN
     Indication: Product used for unknown indication
  2. AZELNIDIPINE [Suspect]
     Active Substance: AZELNIDIPINE
  3. FAMOTIDINE [Concomitant]
     Active Substance: FAMOTIDINE
  4. IRSOGLADINE MALEATE [Concomitant]
     Active Substance: IRSOGLADINE MALEATE
  5. MOSAPRIDE CITRATE [Concomitant]
     Active Substance: MOSAPRIDE CITRATE
  6. FUROSEMIDE [Concomitant]
     Active Substance: FUROSEMIDE
  7. FUROSEMIDE [Concomitant]
     Active Substance: FUROSEMIDE
  8. CIFENLINE [Concomitant]
     Active Substance: CIFENLINE

REACTIONS (1)
  - Atrioventricular block complete [Recovered/Resolved]
